FAERS Safety Report 6260987-1 (Version None)
Quarter: 2009Q3

REPORT INFORMATION
  Report Type: 
  Country: None (occurrence: None)
  Receive Date: 20090707
  Receipt Date: 20090629
  Transmission Date: 20100115
  Serious: Yes (Hospitalization)
  Sender: FDA-Public Use
  Company Number: 09US002269

PATIENT
  Age: 68 Year
  Sex: Female
  Weight: 62.1 kg

DRUGS (5)
  1. PERMETHRIN [Suspect]
     Indication: ACARODERMATITIS
     Dosage: ONE APPLICATION, ONCE, TOPICAL
     Route: 061
     Dates: start: 20090507, end: 20090507
  2. DIGOXIN [Concomitant]
  3. ALDACTONE [Concomitant]
  4. WARFARIN SODIUM [Concomitant]
  5. SIMVASTATIN [Concomitant]

REACTIONS (2)
  - ALCOHOLISM [None]
  - ANXIETY [None]
